FAERS Safety Report 11391153 (Version 1)
Quarter: 2015Q3

REPORT INFORMATION
  Report Type: Spontaneous
  Country: IT (occurrence: None)
  Receive Date: 20150813
  Receipt Date: 20150813
  Transmission Date: 20151125
  Serious: Yes (Other)
  Sender: FDA-Public Use
  Company Number: KAD201508-002584

PATIENT
  Age: 58 Year
  Sex: Female
  Weight: 44 kg

DRUGS (3)
  1. RIBAVIRIN (RIBAVIRIN) [Suspect]
     Active Substance: RIBAVIRIN
     Indication: CHRONIC HEPATITIS C
     Dosage: TABLET, DAILY, ORAL
     Route: 048
     Dates: start: 20150707, end: 20150730
  2. EXVIERA (DASABUVIR) [Suspect]
     Active Substance: DASABUVIR
     Indication: CHRONIC HEPATITIS C
     Dosage: COATED TABLET, DAILY, ORAL
     Route: 048
     Dates: start: 20150707, end: 20150730
  3. VIEKIRAX (OMBITASVIR, PARITAPREVIR, RITONAVIR) [Suspect]
     Active Substance: OMBITASVIR\PARITAPREVIR\RITONAVIR
     Indication: CHRONIC HEPATITIS C
     Dosage: COATED TABLET, DAILY, ORAL
     Route: 048
     Dates: start: 20150707, end: 20150730

REACTIONS (6)
  - Alanine aminotransferase increased [None]
  - Blood bilirubin increased [None]
  - Drug interaction [None]
  - Nausea [None]
  - Aspartate aminotransferase increased [None]
  - Decreased appetite [None]
